FAERS Safety Report 5959466-8 (Version None)
Quarter: 2008Q4

REPORT INFORMATION
  Report Type: 
  Country: None (occurrence: None)
  Receive Date: 20081120
  Receipt Date: 20081111
  Transmission Date: 20090506
  Serious: Yes (Hospitalization, Other)
  Sender: FDA-Public Use
  Company Number: CA-BAYER-200822106NA

PATIENT
  Age: 67 Year
  Sex: Male
  Weight: 53 kg

DRUGS (26)
  1. SORAFENIB [Suspect]
     Indication: NEUROENDOCRINE TUMOUR
     Dosage: TOTAL DAILY DOSE: 800 MG  UNIT DOSE: 200 MG
     Route: 048
     Dates: start: 20080423, end: 20080503
  2. SORAFENIB [Suspect]
     Dosage: TOTAL DAILY DOSE: 400 MG  UNIT DOSE: 200 MG
     Route: 048
     Dates: start: 20080807
  3. SORAFENIB [Suspect]
     Dosage: TOTAL DAILY DOSE: 400 MG  UNIT DOSE: 200 MG
     Route: 048
     Dates: start: 20081028, end: 20081105
  4. CYCLOPHOSPHAMIDE [Suspect]
     Indication: NEUROENDOCRINE TUMOUR
     Dosage: AS USED: 693 MG
     Route: 042
     Dates: start: 20080826
  5. CYCLOPHOSPHAMIDE [Suspect]
     Dosage: TOTAL DAILY DOSE: 960 MG
     Route: 042
     Dates: start: 20080422, end: 20080422
  6. DOXORUBICIN HCL [Suspect]
     Indication: NEUROENDOCRINE TUMOUR
     Dosage: AS USED: 69 MG
     Route: 042
     Dates: start: 20080827
  7. DOXORUBICIN HCL [Suspect]
     Dosage: TOTAL DAILY DOSE: 96 MG
     Route: 042
     Dates: start: 20080423, end: 20080423
  8. FENTANYL [Concomitant]
     Indication: PAIN
     Route: 062
     Dates: start: 20070101
  9. MORPHINE [Concomitant]
     Indication: PAIN
     Dosage: TOTAL DAILY DOSE: 10 MG
     Route: 048
     Dates: start: 20070401
  10. TEMAZEPAM [Concomitant]
     Indication: SLEEP DISORDER
     Dosage: TOTAL DAILY DOSE: 30 MG
     Route: 048
     Dates: start: 20020401
  11. CITALOPRAM HYDROBROMIDE [Concomitant]
     Indication: ANXIETY
     Dosage: TOTAL DAILY DOSE: 40 MG
     Route: 048
     Dates: start: 20071201
  12. CEFUROXIME [Concomitant]
     Indication: NASOPHARYNGITIS
     Dosage: TOTAL DAILY DOSE: 1000 MG
     Route: 048
     Dates: start: 20080428, end: 20080502
  13. MAGNESIUM SULFATE [Concomitant]
     Indication: HYPOMAGNESAEMIA
     Dosage: TOTAL DAILY DOSE: 20 ML
     Route: 048
     Dates: start: 20080530, end: 20080821
  14. MAGNESIUM SULFATE [Concomitant]
     Dosage: TOTAL DAILY DOSE: 40 ML
     Route: 048
     Dates: start: 20080821
  15. SANDOSTATIN [Concomitant]
     Indication: GASTROINTESTINAL HYPOMOTILITY
     Route: 030
     Dates: start: 20060101
  16. LORAZEPAM [Concomitant]
     Indication: ANXIETY
     Route: 048
     Dates: start: 20020401
  17. METAMUCIL [Concomitant]
     Indication: CONSTIPATION
     Route: 048
     Dates: start: 20080902, end: 20080905
  18. COLACE [Concomitant]
     Indication: CONSTIPATION
     Route: 048
     Dates: start: 20080905, end: 20080907
  19. CALCIUM [Concomitant]
     Indication: MINERAL SUPPLEMENTATION
     Dosage: TOTAL DAILY DOSE: 30 ML
     Route: 048
     Dates: start: 20080826
  20. AMOXICILLIN + CLAVULANATE POTASSIUM [Concomitant]
     Indication: ANTIBIOTIC THERAPY
     Dosage: TOTAL DAILY DOSE: 2000 MG
     Route: 048
     Dates: start: 20080908
  21. HYDROCORTISONE CREAM [Concomitant]
     Indication: PALMAR-PLANTAR ERYTHRODYSAESTHESIA SYNDROME
     Route: 061
     Dates: start: 20080915
  22. SLOW-K [Concomitant]
     Indication: HYPOKALAEMIA
     Route: 048
     Dates: start: 20080922, end: 20080929
  23. PROCHLORPERAZINE [Concomitant]
     Indication: NAUSEA
     Route: 048
     Dates: start: 20080401
  24. XYLOCAINE VISCOUS [Concomitant]
     Indication: STOMATITIS
     Route: 048
     Dates: start: 20081014
  25. CREON [Concomitant]
  26. STATEX [Concomitant]
     Route: 048

REACTIONS (4)
  - DEHYDRATION [None]
  - FEBRILE NEUTROPENIA [None]
  - MUCOSAL INFLAMMATION [None]
  - PALMAR-PLANTAR ERYTHRODYSAESTHESIA SYNDROME [None]
